FAERS Safety Report 24941850 (Version 1)
Quarter: 2025Q1

REPORT INFORMATION
  Report Type: Spontaneous
  Country: US (occurrence: US)
  Receive Date: 20250207
  Receipt Date: 20250207
  Transmission Date: 20250409
  Serious: Yes (Other)
  Sender: QUAGEN PHARMACEUTICALS
  Company Number: US-QUAGEN-2025QUALIT00198

PATIENT
  Age: 59 Year
  Sex: Female

DRUGS (13)
  1. VALPROIC ACID [Suspect]
     Active Substance: VALPROIC ACID
     Indication: Hallucination, auditory
     Route: 065
  2. VALPROIC ACID [Suspect]
     Active Substance: VALPROIC ACID
     Indication: Psychotic symptom
  3. RISPERIDONE [Suspect]
     Active Substance: RISPERIDONE
     Indication: Hallucination, auditory
     Route: 065
  4. RISPERIDONE [Suspect]
     Active Substance: RISPERIDONE
     Indication: Psychotic symptom
  5. QUETIAPINE [Suspect]
     Active Substance: QUETIAPINE
     Indication: Hallucination, auditory
     Route: 065
  6. QUETIAPINE [Suspect]
     Active Substance: QUETIAPINE
     Indication: Psychotic symptom
     Route: 065
  7. SERTRALINE [Suspect]
     Active Substance: SERTRALINE HYDROCHLORIDE
     Indication: Hallucination, auditory
     Route: 065
  8. SERTRALINE [Suspect]
     Active Substance: SERTRALINE HYDROCHLORIDE
     Indication: Psychotic symptom
  9. MIRTAZAPINE [Suspect]
     Active Substance: MIRTAZAPINE
     Indication: Hallucination, auditory
     Route: 065
  10. MIRTAZAPINE [Suspect]
     Active Substance: MIRTAZAPINE
     Indication: Psychotic symptom
  11. OLANZAPINE [Suspect]
     Active Substance: OLANZAPINE
     Indication: Hallucination, auditory
     Route: 065
  12. OLANZAPINE [Suspect]
     Active Substance: OLANZAPINE
     Indication: Psychotic symptom
  13. DEFERIPRONE [Concomitant]
     Active Substance: DEFERIPRONE
     Route: 065

REACTIONS (4)
  - Delirium [Recovered/Resolved]
  - Neuroleptic malignant syndrome [Recovering/Resolving]
  - Pancytopenia [Unknown]
  - Drug ineffective for unapproved indication [Unknown]
